FAERS Safety Report 15861635 (Version 4)
Quarter: 2020Q3

REPORT INFORMATION
  Report Type: Report from Study
  Country: US (occurrence: US)
  Receive Date: 20190124
  Receipt Date: 20200928
  Transmission Date: 20201102
  Serious: Yes (Hospitalization)
  Sender: FDA-Public Use
  Company Number: US-ROCHE-2244687

PATIENT
  Age: 49 Year
  Sex: Female
  Weight: 66.3 kg

DRUGS (13)
  1. SULFAMERAZINE;TRIMETHOPRIM [Concomitant]
     Dosage: 800 MG?160 MG 2 TABLETS TWICE A DAYS FOR 2 WEEKS?800 MG?160 MG 1/15, TAKE 4 TABLETS (40 MG) IN THE M
  2. TRIAMCINOLONE [Concomitant]
     Active Substance: TRIAMCINOLONE
     Dosage: APPLY TOPIACALLY TO AFFECTED AREA
     Route: 061
  3. VITAMIN B6 [Concomitant]
     Active Substance: PYRIDOXINE HYDROCHLORIDE
     Dosage: 1 TABLETS DAILY
     Route: 048
  4. FOLIC ACID. [Concomitant]
     Active Substance: FOLIC ACID
     Dosage: EVERY DAY X 30 DAYS
     Route: 048
  5. CLOBETASOL [Concomitant]
     Active Substance: CLOBETASOL
     Route: 061
  6. LACHYDRIN [Concomitant]
     Dosage: 2 PER DAYS AS REQUIRED
     Route: 061
  7. CLOBETASOL [Concomitant]
     Active Substance: CLOBETASOL
     Route: 061
  8. FLUOCINONIDE. [Concomitant]
     Active Substance: FLUOCINONIDE
     Dosage: 3 PER DAYS AS REQUIRED
     Route: 061
  9. COBIMETINIB. [Suspect]
     Active Substance: COBIMETINIB
     Indication: XANTHOGRANULOMA
     Route: 048
     Dates: start: 20181004, end: 20181226
  10. MINOCYCLINE [Concomitant]
     Active Substance: MINOCYCLINE HYDROCHLORIDE
     Route: 048
  11. DEXAMETHASONE. [Concomitant]
     Active Substance: DEXAMETHASONE
     Route: 048
  12. ISONIAZID. [Concomitant]
     Active Substance: ISONIAZID
     Route: 048
  13. PREDNISONE. [Concomitant]
     Active Substance: PREDNISONE
     Route: 048

REACTIONS (5)
  - Pruritus [Unknown]
  - Dyspnoea [Unknown]
  - Rash [Recovered/Resolved]
  - Pneumonia [Recovered/Resolved]
  - Pulmonary oedema [Unknown]

NARRATIVE: CASE EVENT DATE: 20190108
